FAERS Safety Report 8263175-2 (Version None)
Quarter: 2012Q2

REPORT INFORMATION
  Report Type: 
  Country: None (occurrence: None)
  Receive Date: 20120405
  Receipt Date: 20120323
  Transmission Date: 20120825
  Serious: No
  Sender: FDA-Public Use
  Company Number: US-B.I. PHARMACEUTICALS,INC./RIDGEFIELD-2011-BP-00092BP

PATIENT
  Sex: Female

DRUGS (9)
  1. SPIRIVA [Concomitant]
     Indication: CHRONIC OBSTRUCTIVE PULMONARY DISEASE
  2. FUROSEMIDE [Concomitant]
     Indication: HYPERTENSION
  3. PRADAXA [Suspect]
     Indication: PROPHYLAXIS
  4. PRADAXA [Suspect]
     Indication: ATRIAL FIBRILLATION
     Dosage: 300 MG
     Route: 048
     Dates: start: 20101224
  5. CARVEDILOL [Concomitant]
     Indication: HYPERTENSION
  6. TAZTIA XT [Suspect]
     Indication: HYPERTENSION
  7. FUROSEMIDE [Concomitant]
     Indication: DIURETIC THERAPY
  8. TYLENOL D [Suspect]
     Dates: start: 20110801, end: 20110801
  9. GLIPIZIDE [Concomitant]
     Indication: TYPE 2 DIABETES MELLITUS

REACTIONS (5)
  - MELAENA [None]
  - SENSATION OF FOREIGN BODY [None]
  - DYSPEPSIA [None]
  - BREAST PAIN [None]
  - VISUAL IMPAIRMENT [None]
